FAERS Safety Report 10230428 (Version 2)
Quarter: 2014Q2

REPORT INFORMATION
  Report Type: Spontaneous
  Country: US (occurrence: US)
  Receive Date: 20140611
  Receipt Date: 20140611
  Transmission Date: 20141212
  Serious: No
  Sender: FDA-Public Use
  Company Number: US-INCYTE CORPORATION-2014IN000015

PATIENT
  Age: 58 Year
  Sex: Male

DRUGS (5)
  1. JAKAFI [Suspect]
     Indication: MYELOFIBROSIS
     Dosage: NOT SPECIFIED
     Dates: start: 201303
  2. JAKAFI [Suspect]
     Dosage: 15 MG, BID
     Route: 048
  3. JAKAFI [Suspect]
     Dosage: 20 MG, BID
     Route: 048
  4. OXYCODONE [Concomitant]
     Dosage: 5 MG, QD
  5. ADDERALL [Concomitant]
     Dosage: 15 MG, TID

REACTIONS (5)
  - Asthenia [Unknown]
  - Fatigue [Unknown]
  - Mood swings [Unknown]
  - Transfusion [Unknown]
  - Dizziness [Unknown]
